FAERS Safety Report 9324706 (Version 1)
Quarter: 2013Q2

REPORT INFORMATION
  Report Type: Spontaneous
  Country: IT (occurrence: IT)
  Receive Date: 20130603
  Receipt Date: 20130603
  Transmission Date: 20140414
  Serious: Yes (Life-Threatening)
  Sender: FDA-Public Use
  Company Number: IT-GLAXOSMITHKLINE-B0896238A

PATIENT
  Age: 52 Year
  Sex: Male

DRUGS (5)
  1. RYTHMONORM [Suspect]
     Indication: PRODUCT USED FOR UNKNOWN INDICATION
     Route: 065
     Dates: start: 20130401, end: 20130504
  2. CORDARONE [Suspect]
     Indication: PRODUCT USED FOR UNKNOWN INDICATION
     Route: 065
     Dates: start: 20130401, end: 20130504
  3. CARDIRENE [Concomitant]
  4. PLAUNAC [Concomitant]
  5. CARDICOR [Concomitant]

REACTIONS (2)
  - Atrial fibrillation [Recovered/Resolved]
  - Agitation [Unknown]
